FAERS Safety Report 4828170-1 (Version None)
Quarter: 2005Q4

REPORT INFORMATION
  Report Type: 
  Country: None (occurrence: None)
  Receive Date: 20051115
  Receipt Date: 20051024
  Transmission Date: 20060501
  Serious: Yes (Other)
  Sender: FDA-Public Use
  Company Number: 200517132US

PATIENT
  Age: 9 Year
  Sex: Male

DRUGS (3)
  1. AUGMENTIN [Suspect]
     Indication: SINUSITIS
     Route: 065
     Dates: start: 20021202, end: 20021209
  2. INSULIN GLARGINE [Suspect]
     Indication: DIABETES MELLITUS INSULIN-DEPENDENT
     Route: 042
     Dates: start: 20021127
  3. INSULIN LISPRO [Concomitant]
     Route: 065
     Dates: start: 20021127

REACTIONS (3)
  - RASH GENERALISED [None]
  - SWOLLEN TONGUE [None]
  - URTICARIA [None]
